FAERS Safety Report 12904447 (Version 1)
Quarter: 2016Q4

REPORT INFORMATION
  Report Type: Spontaneous
  Country: DK (occurrence: DK)
  Receive Date: 20161102
  Receipt Date: 20161102
  Transmission Date: 20170207
  Serious: Yes (Hospitalization)
  Sender: FDA-Public Use
  Company Number: DK-PFIZER INC-2016470866

PATIENT
  Age: 42 Year
  Sex: Female

DRUGS (1)
  1. ATGAM [Suspect]
     Active Substance: EQUINE THYMOCYTE IMMUNE GLOBULIN
     Indication: APLASTIC ANAEMIA
     Dosage: STANDARD DOSES FOR 4 HOURS AT THE TIME IN FOUR DAYS
     Dates: start: 200101, end: 200102

REACTIONS (6)
  - Gait disturbance [Recovered/Resolved]
  - Tremor [Recovered/Resolved]
  - Paroxysmal nocturnal haemoglobinuria [Not Recovered/Not Resolved]
  - Dyskinesia [Recovered/Resolved]
  - Nervous system disorder [Recovered/Resolved]
  - Renal disorder [Recovered/Resolved]

NARRATIVE: CASE EVENT DATE: 2007
